FAERS Safety Report 14150630 (Version 1)
Quarter: 2017Q4

REPORT INFORMATION
  Report Type: Spontaneous
  Country: IT (occurrence: IT)
  Receive Date: 20171101
  Receipt Date: 20171101
  Transmission Date: 20180321
  Serious: Yes (Hospitalization, Other)
  Sender: FDA-Public Use
  Company Number: IT-MYLANLABS-2017M1067943

PATIENT
  Age: 49 Year
  Sex: Female

DRUGS (7)
  1. LEVOPRAID (SULPIRIDE) [Concomitant]
     Active Substance: SULPIRIDE
     Indication: PRODUCT USED FOR UNKNOWN INDICATION
     Dosage: 1 DF, UNK
     Route: 048
  2. QUETIAPINE. [Suspect]
     Active Substance: QUETIAPINE
     Indication: PRODUCT USED FOR UNKNOWN INDICATION
     Dosage: 1700 MG, TOTAL
     Route: 048
     Dates: start: 20160816, end: 20160816
  3. CITALOPRAM [Concomitant]
     Active Substance: CITALOPRAM HYDROBROMIDE
     Dosage: 15 MG, UNK
     Route: 048
  4. GABAPENTIN MYLAN GENERICS 300 MG CAPSULE RIGIDE [Suspect]
     Active Substance: GABAPENTIN
     Indication: PRODUCT USED FOR UNKNOWN INDICATION
     Dosage: 34 DF, TOTAL
     Route: 048
     Dates: start: 20160816, end: 20160816
  5. RIVOTRIL [Suspect]
     Active Substance: CLONAZEPAM
     Indication: PRODUCT USED FOR UNKNOWN INDICATION
     Dosage: 8.5 MG, TOTAL
     Route: 048
     Dates: start: 20160816, end: 20160816
  6. LEVOPRAID (SULPIRIDE) [Concomitant]
     Active Substance: SULPIRIDE
     Dosage: 1 DF
     Route: 048
  7. CITALOPRAM [Concomitant]
     Active Substance: CITALOPRAM HYDROBROMIDE
     Indication: PRODUCT USED FOR UNKNOWN INDICATION
     Dosage: 15 MG, UNK
     Route: 048

REACTIONS (6)
  - Overdose [Unknown]
  - Sopor [Recovering/Resolving]
  - Drug abuse [Recovering/Resolving]
  - Intentional self-injury [Unknown]
  - Extrapyramidal disorder [Recovering/Resolving]
  - Tachycardia [Recovering/Resolving]

NARRATIVE: CASE EVENT DATE: 20160816
